FAERS Safety Report 6189937-3 (Version None)
Quarter: 2009Q2

REPORT INFORMATION
  Report Type: 
  Country: None (occurrence: None)
  Receive Date: 20090512
  Receipt Date: 20090512
  Transmission Date: 20091009
  Serious: No
  Sender: FDA-Public Use
  Company Number: None

PATIENT
  Age: 45 Year
  Sex: Male
  Weight: 133.8111 kg

DRUGS (1)
  1. PROAIR HFA [Suspect]
     Indication: ASTHMA
     Dosage: 1 PUFF EVERY 4 HR
     Dates: start: 20090227, end: 20090321

REACTIONS (2)
  - LUNG INFECTION [None]
  - PULMONARY OEDEMA [None]
